FAERS Safety Report 14334733 (Version 8)
Quarter: 2018Q1

REPORT INFORMATION
  Report Type: Spontaneous
  Country: IT (occurrence: IT)
  Receive Date: 20171228
  Receipt Date: 20180115
  Transmission Date: 20180509
  Serious: Yes (Other)
  Sender: FDA-Public Use
  Company Number: IT-CONCORDIA PHARMACEUTICALS INC.-E2B_00009055

PATIENT
  Age: 22 Year
  Sex: Female

DRUGS (1)
  1. BENZYL ALCOHOL [Suspect]
     Active Substance: BENZYL ALCOHOL
     Route: 048
     Dates: start: 20171108, end: 20171109

REACTIONS (2)
  - Lip oedema [Recovering/Resolving]
  - Angioedema [Recovering/Resolving]

NARRATIVE: CASE EVENT DATE: 20171108
